FAERS Safety Report 14325740 (Version 3)
Quarter: 2019Q4

REPORT INFORMATION
  Report Type: Spontaneous
  Country: NL (occurrence: NL)
  Receive Date: 20171226
  Receipt Date: 20191003
  Transmission Date: 20200122
  Serious: Yes (Hospitalization, Other)
  Sender: FDA-Public Use
  Company Number: NL-MYLANLABS-2017M1081879

PATIENT
  Age: 61 Year
  Sex: Female
  Weight: 85 kg

DRUGS (3)
  1. ANASTROZOLE. [Concomitant]
     Active Substance: ANASTROZOLE
     Indication: PRODUCT USED FOR UNKNOWN INDICATION
     Dosage: UNK
  2. ZOLEDRONIC ACID [Suspect]
     Active Substance: ZOLEDRONIC ACID
     Indication: BREAST CANCER
     Dosage: 0.05 MILLIGRAM PER MILLILITRE, TOTAL
     Route: 042
     Dates: start: 20170201
  3. KIOVIG [Concomitant]
     Active Substance: HUMAN IMMUNOGLOBULIN G
     Dosage: 40MG EEN KEER PER DRIE WEKEN

REACTIONS (19)
  - Chills [Recovered/Resolved]
  - Acute phase reaction [Recovered/Resolved]
  - Hypersomnia [Unknown]
  - C-reactive protein increased [Recovered/Resolved]
  - Nasopharyngitis [Recovered/Resolved]
  - Disease recurrence [Recovered/Resolved]
  - Paraesthesia [Unknown]
  - Mobility decreased [Recovering/Resolving]
  - Decreased vibratory sense [Recovering/Resolving]
  - Headache [Recovering/Resolving]
  - Chronic inflammatory demyelinating polyradiculoneuropathy [Recovered/Resolved]
  - Gait disturbance [Recovering/Resolving]
  - Dysaesthesia [Not Recovered/Not Resolved]
  - Areflexia [Recovering/Resolving]
  - Fatigue [Recovered/Resolved]
  - Red blood cell sedimentation rate increased [Recovered/Resolved]
  - Monoparesis [Recovering/Resolving]
  - Myalgia [Recovered/Resolved]
  - Off label use [Unknown]

NARRATIVE: CASE EVENT DATE: 20170202
